FAERS Safety Report 25195741 (Version 1)
Quarter: 2025Q2

REPORT INFORMATION
  Report Type: Spontaneous
  Country: US (occurrence: US)
  Receive Date: 20250415
  Receipt Date: 20250415
  Transmission Date: 20250717
  Serious: No
  Sender: SANOFI AVENTIS
  Company Number: US-SA-2025SA103926

PATIENT
  Age: 77 Year
  Sex: Female
  Weight: 43.09 kg

DRUGS (11)
  1. DUPIXENT [Suspect]
     Active Substance: DUPILUMAB
     Indication: Asthma
     Route: 058
     Dates: start: 20250320, end: 20250320
  2. PREDNISONE [Concomitant]
     Active Substance: PREDNISONE
  3. LINZESS [Concomitant]
     Active Substance: LINACLOTIDE
  4. FAMOTIDINE [Concomitant]
     Active Substance: FAMOTIDINE
  5. MONTELUKAST SODIUM [Concomitant]
     Active Substance: MONTELUKAST SODIUM
  6. ISOSORBIDE DINITRATE [Concomitant]
     Active Substance: ISOSORBIDE DINITRATE
  7. ROSUVASTATIN CALCIUM [Concomitant]
     Active Substance: ROSUVASTATIN CALCIUM
  8. MIRTAZAPINE [Concomitant]
     Active Substance: MIRTAZAPINE
  9. LAMICTAL [Concomitant]
     Active Substance: LAMOTRIGINE
  10. SPIRIVA RESPIMAT [Concomitant]
     Active Substance: TIOTROPIUM BROMIDE
  11. PERFOROMIST [Concomitant]
     Active Substance: FORMOTEROL FUMARATE DIHYDRATE

REACTIONS (1)
  - Nocturnal dyspnoea [Not Recovered/Not Resolved]

NARRATIVE: CASE EVENT DATE: 20250406
